FAERS Safety Report 7227410-1 (Version None)
Quarter: 2011Q1

REPORT INFORMATION
  Report Type: 
  Country: None (occurrence: None)
  Receive Date: 20110111
  Receipt Date: 20110111
  Transmission Date: 20110831
  Serious: Yes (Other)
  Sender: FDA-Public Use
  Company Number: None

PATIENT
  Sex: Female
  Weight: 57.1532 kg

DRUGS (1)
  1. LEVAQUIN [Suspect]
     Indication: PNEUMONIA
     Dosage: 5 CAPSULES 1 A DAY
     Dates: start: 20100228, end: 20100304

REACTIONS (10)
  - CHEST PAIN [None]
  - INTERVERTEBRAL DISC PROTRUSION [None]
  - PAIN [None]
  - MUSCULAR WEAKNESS [None]
  - TREMOR [None]
  - DIZZINESS [None]
  - MYOSITIS [None]
  - NEUROPATHY PERIPHERAL [None]
  - WEIGHT DECREASED [None]
  - NERVE INJURY [None]
